FAERS Safety Report 8770126 (Version 2)
Quarter: 2012Q4

REPORT INFORMATION
  Report Type: 
  Country: KR (occurrence: KR)
  Receive Date: 20120905
  Receipt Date: 20121030
  Transmission Date: 20130627
  Serious: Yes (Other)
  Sender: FDA-Public Use
  Company Number: KR-009507513-1208KOR007810

PATIENT
  Age: 38 Year
  Sex: Female

DRUGS (1)
  1. IMPLANON [Suspect]
     Indication: CONTRACEPTION
     Dosage: UNK
     Route: 059
     Dates: start: 20110921

REACTIONS (3)
  - Abortion [Recovered/Resolved]
  - Pregnancy [Recovered/Resolved]
  - Device difficult to use [Unknown]
